FAERS Safety Report 10201180 (Version 5)
Quarter: 2014Q3

REPORT INFORMATION
  Report Type: Spontaneous
  Country: US (occurrence: US)
  Receive Date: 20140528
  Receipt Date: 20140808
  Transmission Date: 20150326
  Serious: No
  Sender: FDA-Public Use
  Company Number: US-PFIZER INC-2014144459

PATIENT
  Sex: Female

DRUGS (1)
  1. METAXALONE. [Suspect]
     Active Substance: METAXALONE
     Indication: MUSCLE SPASMS
     Dosage: 800 MG, UNK

REACTIONS (4)
  - Drug effect incomplete [Unknown]
  - Terminal insomnia [Unknown]
  - Agitation [Unknown]
  - Drug ineffective [Unknown]
